FAERS Safety Report 8163034-X (Version None)
Quarter: 2012Q1

REPORT INFORMATION
  Report Type: 
  Country: None (occurrence: None)
  Receive Date: 20120224
  Receipt Date: 20120221
  Transmission Date: 20120608
  Serious: Yes (Death)
  Sender: FDA-Public Use
  Company Number: AU-B.I. PHARMACEUTICALS,INC./RIDGEFIELD-2012-AU-00239AU

PATIENT
  Sex: Female

DRUGS (12)
  1. LIPITOR [Concomitant]
     Dosage: 80 MG
  2. LERCANIDIPINE [Concomitant]
     Dosage: 20 MG
  3. METHYLDOPA [Concomitant]
     Dosage: 75 MG
  4. TENSIG [Concomitant]
     Dosage: 100 MG
  5. INDOPRIL [Concomitant]
     Dosage: 8 MG
  6. ALDACTONE [Concomitant]
     Dosage: 12.5 MG
  7. PRADAXA [Suspect]
     Indication: ATRIAL FIBRILLATION
     Dosage: 220 MG
     Dates: start: 20110712
  8. EZETIMIBE [Concomitant]
     Dosage: 10 MG
  9. MOTILIUM [Concomitant]
     Dosage: 10 MG
  10. MONODUR [Concomitant]
     Dosage: 60 MG
  11. CLONIX [Concomitant]
     Dosage: 4 MG
  12. DITHIAZIDE [Concomitant]
     Dosage: 12.5 MG

REACTIONS (3)
  - CARDIAC ARREST [None]
  - VENTRICULAR FIBRILLATION [None]
  - HYPOXIC-ISCHAEMIC ENCEPHALOPATHY [None]
